FAERS Safety Report 16921070 (Version 2)
Quarter: 2019Q4

REPORT INFORMATION
  Report Type: Spontaneous
  Country: US (occurrence: US)
  Receive Date: 20191015
  Receipt Date: 20191024
  Transmission Date: 20200122
  Serious: No
  Sender: FDA-Public Use
  Company Number: US-TEVA-2019-US-1120316

PATIENT
  Sex: Male

DRUGS (1)
  1. CLONAZEPAM TEVA [Suspect]
     Active Substance: CLONAZEPAM
     Route: 065

REACTIONS (8)
  - Loss of personal independence in daily activities [Unknown]
  - Dizziness [Unknown]
  - Dry mouth [Unknown]
  - Nausea [Unknown]
  - Palpitations [Unknown]
  - Head discomfort [Unknown]
  - Drug ineffective [Unknown]
  - Malaise [Unknown]
